FAERS Safety Report 22201547 (Version 1)
Quarter: 2023Q2

REPORT INFORMATION
  Report Type: Spontaneous
  Country: US (occurrence: US)
  Receive Date: 20230412
  Receipt Date: 20230412
  Transmission Date: 20230721
  Serious: No
  Sender: FDA-Public Use
  Company Number: US-TEVA-2023-US-2872863

PATIENT
  Age: 47 Year
  Sex: Female

DRUGS (1)
  1. NAPHAZOLINE HYDROCHLORIDE [Suspect]
     Active Substance: NAPHAZOLINE HYDROCHLORIDE
     Indication: Product used for unknown indication
     Dosage: 0.2 %
     Route: 065

REACTIONS (3)
  - Eye infection [Unknown]
  - Eyelid disorder [Recovering/Resolving]
  - Visual impairment [Unknown]
